FAERS Safety Report 21248994 (Version 1)
Quarter: 2022Q3

REPORT INFORMATION
  Report Type: Spontaneous
  Country: FR (occurrence: FR)
  Receive Date: 20220824
  Receipt Date: 20220824
  Transmission Date: 20221027
  Serious: Yes (Death)
  Sender: FDA-Public Use
  Company Number: None

PATIENT
  Age: 89 Year
  Sex: Female
  Weight: 51.8 kg

DRUGS (1)
  1. PAXLOVID [Suspect]
     Active Substance: NIRMATRELVIR\RITONAVIR
     Indication: COVID-19 treatment
     Dosage: 2 DF DAILY, 150 MG + 100 MG,
     Route: 048
     Dates: start: 20220613, end: 20220614

REACTIONS (7)
  - Cardiogenic shock [Fatal]
  - Acute kidney injury [Fatal]
  - Myocardial ischaemia [Fatal]
  - Electrocardiogram abnormal [Fatal]
  - Troponin increased [Fatal]
  - Hypokalaemia [Fatal]
  - Inappropriate schedule of product administration [Unknown]

NARRATIVE: CASE EVENT DATE: 20220613
